FAERS Safety Report 18886059 (Version 1)
Quarter: 2021Q1

REPORT INFORMATION
  Report Type: Spontaneous
  Country: US (occurrence: US)
  Receive Date: 20210212
  Receipt Date: 20210212
  Transmission Date: 20210420
  Serious: Yes (Hospitalization)
  Sender: FDA-Public Use
  Company Number: US-MYLANLABS-2021M1008667

PATIENT
  Age: 38 Year
  Sex: Female

DRUGS (1)
  1. ACETAMINOPHEN. [Suspect]
     Active Substance: ACETAMINOPHEN
     Indication: PAIN
     Dosage: FREQUENT INTRANASAL USE OF...
     Route: 045

REACTIONS (4)
  - Fungal infection [Recovered/Resolved]
  - Nasal necrosis [Recovered/Resolved]
  - Sinusitis [Recovered/Resolved]
  - Intentional product misuse [Recovered/Resolved]
